FAERS Safety Report 18403645 (Version 1)
Quarter: 2020Q4

REPORT INFORMATION
  Report Type: Spontaneous
  Country: IN (occurrence: IN)
  Receive Date: 20201020
  Receipt Date: 20201020
  Transmission Date: 20210114
  Serious: Yes (Hospitalization, Other)
  Sender: FDA-Public Use
  Company Number: IN-AXELLIA-003428

PATIENT
  Age: 65 Year
  Sex: Male

DRUGS (2)
  1. CEFOPERAZONE/SULBACTAM [Concomitant]
     Active Substance: CEFOPERAZONE\SULBACTAM
     Indication: ACINETOBACTER INFECTION
     Dosage: 2 G 12 HOURLY
  2. COLISTIN [Suspect]
     Active Substance: COLISTIN
     Indication: ACINETOBACTER INFECTION
     Dosage: 2 MILLION UNITS 8 HOURLY

REACTIONS (1)
  - Bartter^s syndrome [Recovered/Resolved]
